FAERS Safety Report 25862341 (Version 1)
Quarter: 2025Q3

REPORT INFORMATION
  Report Type: Report from Study
  Country: AR (occurrence: AR)
  Receive Date: 20250930
  Receipt Date: 20250930
  Transmission Date: 20251021
  Serious: Yes (Death, Hospitalization)
  Sender: AMGEN
  Company Number: AR-AMGEN-ARGSL2025134852

PATIENT
  Age: 64 Year
  Sex: Male

DRUGS (3)
  1. LUMAKRAS [Suspect]
     Active Substance: SOTORASIB
     Indication: Non-small cell lung cancer
     Route: 065
     Dates: start: 20250628, end: 2025
  2. LUMAKRAS [Suspect]
     Active Substance: SOTORASIB
     Indication: K-ras gene mutation
     Dosage: 720 MILLIGRAM, QD (6 PILLS)
     Route: 065
     Dates: start: 2025, end: 2025
  3. LUMAKRAS [Suspect]
     Active Substance: SOTORASIB
     Dosage: 960 MILLIGRAM, QD (JOURNAL)
     Route: 065
     Dates: start: 2025, end: 2025

REACTIONS (5)
  - Hepatotoxicity [Fatal]
  - Ill-defined disorder [Unknown]
  - Drug ineffective [Unknown]
  - Adverse reaction [Not Recovered/Not Resolved]
  - Therapy interrupted [Unknown]

NARRATIVE: CASE EVENT DATE: 20250101
